FAERS Safety Report 4640319-2 (Version None)
Quarter: 2005Q2

REPORT INFORMATION
  Report Type: 
  Country: None (occurrence: None)
  Receive Date: 20050420
  Receipt Date: 20041103
  Transmission Date: 20051028
  Serious: No
  Sender: FDA-Public Use
  Company Number: US-GLAXOSMITHKLINE-A0532543A

PATIENT
  Age: 50 Year
  Sex: Female
  Weight: 63.6 kg

DRUGS (3)
  1. ESKALITH [Suspect]
     Dosage: 450MG TWICE PER DAY
     Route: 048
  2. DOXEPIN HCL [Concomitant]
  3. ZYPREXA [Concomitant]

REACTIONS (1)
  - ALOPECIA [None]
